FAERS Safety Report 21927656 (Version 1)
Quarter: 2023Q1

REPORT INFORMATION
  Report Type: Spontaneous
  Country: US (occurrence: US)
  Receive Date: 20230130
  Receipt Date: 20230130
  Transmission Date: 20230418
  Serious: No
  Sender: FDA-Public Use
  Company Number: US-CELGENE-USA-20220204602

PATIENT
  Age: 72 Year
  Sex: Male

DRUGS (7)
  1. REVLIMID [Suspect]
     Active Substance: LENALIDOMIDE
     Indication: Plasma cell myeloma
     Dosage: 25 MILLIGRAM
     Route: 048
     Dates: start: 201303
  2. REVLIMID [Suspect]
     Active Substance: LENALIDOMIDE
     Dosage: 15-25 MILLIGRAM
     Route: 048
     Dates: start: 201310
  3. REVLIMID [Suspect]
     Active Substance: LENALIDOMIDE
     Dosage: 15-10 MILLIGRAM
     Route: 048
     Dates: start: 201501
  4. COLESTIPOL [Concomitant]
     Active Substance: COLESTIPOL
     Indication: Product used for unknown indication
     Dosage: 1 GRAM
  5. COLESTIPOL [Concomitant]
     Active Substance: COLESTIPOL
     Dosage: FREQUENCY TEXT: NOT PROVIDED
     Route: 048
  6. FISH OIL [Concomitant]
     Active Substance: FISH OIL
     Indication: Product used for unknown indication
     Route: 048
  7. FISH OIL [Concomitant]
     Active Substance: FISH OIL
     Dosage: FREQUENCY TEXT: NOT PROVIDED
     Route: 048

REACTIONS (1)
  - COVID-19 [Unknown]

NARRATIVE: CASE EVENT DATE: 20220101
